FAERS Safety Report 8524572-0 (Version None)
Quarter: 2012Q2

REPORT INFORMATION
  Report Type: 
  Country: None (occurrence: None)
  Receive Date: 20120406
  Receipt Date: 20110711
  Transmission Date: 20120825
  Serious: Yes (Other)
  Sender: FDA-Public Use
  Company Number: US-2011-10506

PATIENT
  Age: 2 Year
  Sex: Female

DRUGS (8)
  1. BUSULFEX [Suspect]
     Indication: STEM CELL TRANSPLANT
     Dosage: 16 MG/KG, DAILY
  2. ACETAMINOPHEN [Concomitant]
  3. FLUDARABINE PHOSPHATE [Concomitant]
  4. METHYLPREDNISOLONE [Concomitant]
  5. TACROLIMUS [Concomitant]
  6. ALEMTUZUMAB (ALEMTUZUMAB) [Concomitant]
  7. PHENYTOIN (PHENYTOIN) [Concomitant]
  8. DIPHENHYDRAMINE HCL [Concomitant]

REACTIONS (2)
  - CHRONIC GRAFT VERSUS HOST DISEASE [None]
  - ACUTE GRAFT VERSUS HOST DISEASE IN INTESTINE [None]
